FAERS Safety Report 6550834-2 (Version None)
Quarter: 2010Q1

REPORT INFORMATION
  Report Type: 
  Country: None (occurrence: None)
  Receive Date: 20100125
  Receipt Date: 20100118
  Transmission Date: 20100710
  Serious: Yes (Other)
  Sender: FDA-Public Use
  Company Number: TR-ELI_LILLY_AND_COMPANY-TR201001003589

PATIENT
  Sex: Female

DRUGS (4)
  1. HUMULIN R [Suspect]
     Indication: GESTATIONAL DIABETES
     Dosage: 8 IU, EACH MORNING
     Route: 064
     Dates: start: 20090901, end: 20091119
  2. HUMULIN R [Suspect]
     Dosage: 8 IU, DAILY (1/D)
     Route: 064
     Dates: start: 20090901, end: 20091119
  3. HUMULIN R [Suspect]
     Dosage: 8 IU, EACH EVENING
     Route: 064
     Dates: start: 20090901, end: 20091119
  4. LEVOTHYROXINE SODIUM [Concomitant]
     Indication: THYROID DISORDER
     Dosage: UNK, DAILY (1/D)
     Route: 064

REACTIONS (4)
  - DRUG EXPOSURE DURING PREGNANCY [None]
  - FOETAL HEART RATE ABNORMAL [None]
  - PREMATURE BABY [None]
  - UMBILICAL CORD AROUND NECK [None]
